FAERS Safety Report 20922953 (Version 5)
Quarter: 2022Q4

REPORT INFORMATION
  Report Type: Report from Study
  Country: US (occurrence: US)
  Receive Date: 20220607
  Receipt Date: 20221024
  Transmission Date: 20230112
  Serious: Yes (Hospitalization, Other)
  Sender: FDA-Public Use
  Company Number: US-INSMED, INC.-2021-08665-US

PATIENT
  Sex: Female

DRUGS (5)
  1. ARIKAYCE [Suspect]
     Active Substance: AMIKACIN
     Indication: Product used for unknown indication
     Dosage: 590 MILLIGRAM, QD
     Route: 055
     Dates: end: 2021
  2. ARIKAYCE [Suspect]
     Active Substance: AMIKACIN
     Dosage: 590 MILLIGRAM, QD
     Route: 055
     Dates: start: 2021, end: 2021
  3. ARIKAYCE [Suspect]
     Active Substance: AMIKACIN
     Dosage: 590 MILLIGRAM, QD
     Route: 055
     Dates: start: 2021, end: 2022
  4. ARIKAYCE [Suspect]
     Active Substance: AMIKACIN
     Dosage: 590 MILLIGRAM, QD
     Route: 055
     Dates: start: 2022, end: 2022
  5. ARIKAYCE [Suspect]
     Active Substance: AMIKACIN
     Dosage: 590 MILLIGRAM, QD
     Route: 055
     Dates: start: 2022

REACTIONS (14)
  - Hospitalisation [Unknown]
  - Hospitalisation [Unknown]
  - Knee arthroplasty [Unknown]
  - Deafness [Unknown]
  - Depression [Unknown]
  - Myalgia [Not Recovered/Not Resolved]
  - Malaise [Unknown]
  - Unevaluable event [Unknown]
  - Haemoptysis [Unknown]
  - Product dose omission issue [Unknown]
  - Off label use [Unknown]
  - Therapy interrupted [Unknown]
  - Insurance issue [Unknown]
  - Intentional dose omission [Unknown]

NARRATIVE: CASE EVENT DATE: 20210101
